FAERS Safety Report 16091006 (Version 1)
Quarter: 2019Q1

REPORT INFORMATION
  Report Type: Report from Study
  Country: DE (occurrence: DE)
  Receive Date: 20190319
  Receipt Date: 20190319
  Transmission Date: 20190418
  Serious: Yes (Death, Other)
  Sender: FDA-Public Use
  Company Number: DE-PFIZER INC-2019116874

PATIENT
  Age: 74 Year
  Sex: Female

DRUGS (14)
  1. PACLITAXEL. [Suspect]
     Active Substance: PACLITAXEL
     Dosage: 290.5 MG, UNK
     Dates: start: 20121210
  2. CARBOPLATIN. [Suspect]
     Active Substance: CARBOPLATIN
     Dosage: 520 MG, UNK
     Dates: start: 20130104
  3. PACLITAXEL. [Suspect]
     Active Substance: PACLITAXEL
     Dosage: 290.5 MG, UNK
     Dates: start: 20130125
  4. PACLITAXEL. [Suspect]
     Active Substance: PACLITAXEL
     Dosage: 290.5 MG, UNK
     Dates: start: 20130104
  5. CARBOPLATIN. [Suspect]
     Active Substance: CARBOPLATIN
     Dosage: 520 MG, UNK
     Dates: start: 20121119
  6. BEVACIZUMAB. [Suspect]
     Active Substance: BEVACIZUMAB
     Dosage: 969 MG, UNK
     Dates: start: 20130712
  7. CARBOPLATIN. [Suspect]
     Active Substance: CARBOPLATIN
     Indication: OVARIAN CANCER
     Dosage: 465 MG, UNK
     Dates: start: 20130125
  8. PACLITAXEL. [Suspect]
     Active Substance: PACLITAXEL
     Dosage: 294 MG, UNK
     Dates: start: 20121029
  9. PACLITAXEL. [Suspect]
     Active Substance: PACLITAXEL
     Dosage: 290.5 MG, UNK
     Dates: start: 20121119
  10. BEVACIZUMAB. [Suspect]
     Active Substance: BEVACIZUMAB
     Indication: OVARIAN CANCER
     Dosage: 951 MG, UNK
     Dates: start: 20121119, end: 20130712
  11. CARBOPLATIN. [Suspect]
     Active Substance: CARBOPLATIN
     Dosage: 605 MG, UNK
     Dates: start: 20121008
  12. CARBOPLATIN. [Suspect]
     Active Substance: CARBOPLATIN
     Dosage: 605 MG, UNK
     Dates: start: 20121029
  13. CARBOPLATIN. [Suspect]
     Active Substance: CARBOPLATIN
     Dosage: 465 MG, UNK
     Dates: start: 20121210
  14. PACLITAXEL. [Suspect]
     Active Substance: PACLITAXEL
     Dosage: 294 MG, UNK
     Dates: start: 20121008

REACTIONS (20)
  - Alopecia [Not Recovered/Not Resolved]
  - Epistaxis [Recovered/Resolved]
  - Diarrhoea [Recovered/Resolved]
  - Bone pain [Not Recovered/Not Resolved]
  - Vomiting [Recovered/Resolved]
  - Nail disorder [Recovered/Resolved]
  - Dyspnoea [Recovered/Resolved]
  - Pyrexia [Recovered/Resolved]
  - Pain [Not Recovered/Not Resolved]
  - Nausea [Recovered/Resolved]
  - Arthralgia [Recovered/Resolved]
  - Hot flush [Recovered/Resolved]
  - Polyneuropathy [Not Recovered/Not Resolved]
  - Insomnia [Recovered/Resolved]
  - Death [Fatal]
  - Fatigue [Not Recovered/Not Resolved]
  - Enteritis infectious [Recovered/Resolved]
  - Palmar-plantar erythrodysaesthesia syndrome [Recovered/Resolved]
  - Headache [Not Recovered/Not Resolved]
  - Stomatitis [Recovered/Resolved]

NARRATIVE: CASE EVENT DATE: 20121119
